FAERS Safety Report 25668873 (Version 1)
Quarter: 2025Q3

REPORT INFORMATION
  Report Type: Report from Study
  Country: US (occurrence: US)
  Receive Date: 20250812
  Receipt Date: 20250812
  Transmission Date: 20251021
  Serious: Yes (Other)
  Sender: TAKEDA
  Company Number: US-TAKEDA-2025TUS070289

PATIENT
  Age: 76 Year
  Sex: Male
  Weight: 84 kg

DRUGS (2)
  1. VEDOLIZUMAB [Suspect]
     Active Substance: VEDOLIZUMAB
     Indication: Colitis ulcerative
     Dosage: 108 MILLIGRAM, Q2WEEKS
  2. VEDOLIZUMAB [Suspect]
     Active Substance: VEDOLIZUMAB

REACTIONS (6)
  - Cerebrovascular accident [Unknown]
  - Rheumatoid arthritis [Unknown]
  - Pancreatic failure [Unknown]
  - Systemic lupus erythematosus [Unknown]
  - Squamous cell carcinoma of skin [Unknown]
  - Asthma [Unknown]

NARRATIVE: CASE EVENT DATE: 20250707
